FAERS Safety Report 7179083-4 (Version None)
Quarter: 2010Q4

REPORT INFORMATION
  Report Type: 
  Country: None (occurrence: None)
  Receive Date: 20101221
  Receipt Date: 20101207
  Transmission Date: 20110411
  Serious: No
  Sender: FDA-Public Use
  Company Number: US-PFIZER INC-2010167067

PATIENT
  Sex: Male
  Weight: 69 kg

DRUGS (1)
  1. CHANTIX [Suspect]
     Indication: SMOKING CESSATION THERAPY
     Dosage: 0.5 MG, 1X/DAY
     Route: 048
     Dates: start: 20101204

REACTIONS (7)
  - ABNORMAL DREAMS [None]
  - DISTURBANCE IN ATTENTION [None]
  - FLUSHING [None]
  - MEMORY IMPAIRMENT [None]
  - PYREXIA [None]
  - SINUS CONGESTION [None]
  - SOMNOLENCE [None]
